FAERS Safety Report 18284483 (Version 1)
Quarter: 2020Q3

REPORT INFORMATION
  Report Type: Spontaneous
  Country: GR (occurrence: GR)
  Receive Date: 20200918
  Receipt Date: 20200918
  Transmission Date: 20201103
  Serious: Yes (Other)
  Sender: FDA-Public Use
  Company Number: GR-BAUSCH-BL-2020-026186

PATIENT
  Age: 20 Year
  Sex: Male

DRUGS (1)
  1. ACYCLOVIR. [Suspect]
     Active Substance: ACYCLOVIR
     Indication: HERPES ZOSTER
     Dosage: STANDARD?DOSE TO BE ADMINISTERED OVER NEXT 7 DAYS
     Route: 042

REACTIONS (1)
  - Immune thrombocytopenia [Recovered/Resolved]
